FAERS Safety Report 15314072 (Version 1)
Quarter: 2018Q3

REPORT INFORMATION
  Report Type: Spontaneous
  Country: US (occurrence: US)
  Receive Date: 20180824
  Receipt Date: 20180824
  Transmission Date: 20181010
  Serious: No
  Sender: FDA-Public Use
  Company Number: US-009507513-1807USA011579

PATIENT
  Age: 59 Year
  Sex: Male

DRUGS (3)
  1. COZAAR [Suspect]
     Active Substance: LOSARTAN POTASSIUM
     Indication: POLYCYTHAEMIA
     Dosage: 100 MG DAILY
     Route: 048
     Dates: start: 2016
  2. ASPIRIN. [Concomitant]
     Active Substance: ASPIRIN
     Indication: POLYCYTHAEMIA
     Dosage: 81 MG ONCE A DAY
  3. COZAAR [Suspect]
     Active Substance: LOSARTAN POTASSIUM
     Indication: HYPERTENSION
     Dosage: 50 MG, ONCE A DAY
     Route: 048
     Dates: start: 2014, end: 2016

REACTIONS (1)
  - Off label use [Unknown]

NARRATIVE: CASE EVENT DATE: 2016
